FAERS Safety Report 9391051 (Version 3)
Quarter: 2013Q4

REPORT INFORMATION
  Report Type: Report from Study
  Country: FR (occurrence: FR)
  Receive Date: 20130709
  Receipt Date: 20131029
  Transmission Date: 20140711
  Serious: Yes (Death, Life-Threatening, Hospitalization, Other)
  Sender: FDA-Public Use
  Company Number: FR-NOVOPROD-382288

PATIENT
  Age: 72 Year
  Sex: Male
  Weight: 145 kg

DRUGS (14)
  1. LIRAGLUTIDE FLEXPEN [Suspect]
     Indication: TYPE 2 DIABETES MELLITUS
     Dosage: 1.2 MG, QD
     Route: 058
     Dates: start: 20110930, end: 20130514
  2. METFORMINE [Concomitant]
     Indication: TYPE 2 DIABETES MELLITUS
     Route: 048
     Dates: end: 20130514
  3. AMAREL [Concomitant]
     Indication: TYPE 2 DIABETES MELLITUS
     Route: 048
     Dates: end: 20130514
  4. MEDIATENSYL                        /00631801/ [Concomitant]
  5. AMLODIPINE [Concomitant]
  6. VERAPAMIL [Concomitant]
  7. KARDEGIC [Concomitant]
  8. KALEORID [Concomitant]
  9. HYPERIUM [Concomitant]
  10. ALDACTONE                          /00006201/ [Concomitant]
  11. VOLTARENE                          /00372302/ [Concomitant]
  12. MIANSERINE [Concomitant]
  13. DUOTRAV [Concomitant]
  14. NORMACOL                           /00086101/ [Concomitant]

REACTIONS (2)
  - Hepatic neoplasm [Fatal]
  - Hepatocellular carcinoma [Fatal]
